FAERS Safety Report 10343366 (Version 9)
Quarter: 2017Q4

REPORT INFORMATION
  Report Type: Spontaneous
  Country: US (occurrence: US)
  Receive Date: 20140725
  Receipt Date: 20171122
  Transmission Date: 20180320
  Serious: Yes (Hospitalization, Other)
  Sender: FDA-Public Use
  Company Number: US-009507513-1407USA009389

PATIENT
  Sex: Female
  Weight: 77.1 kg

DRUGS (2)
  1. FOSAMAX PLUS D [Suspect]
     Active Substance: ALENDRONATE SODIUM\CHOLECALCIFEROL
     Indication: OSTEOPOROSIS
     Dosage: 70 MG/2800 IU, QD
     Route: 048
     Dates: start: 200807, end: 201204
  2. FOSAMAX [Suspect]
     Active Substance: ALENDRONATE SODIUM
     Indication: OSTEOPOROSIS
     Dosage: 70 MG, QW
     Route: 048
     Dates: start: 20010820, end: 200807

REACTIONS (30)
  - Multiple fractures [Unknown]
  - Radiculopathy [Unknown]
  - Exostosis [Unknown]
  - Joint swelling [Unknown]
  - Fracture nonunion [Unknown]
  - Lumbar vertebral fracture [Unknown]
  - Spondylitis [Unknown]
  - Intervertebral disc degeneration [Unknown]
  - Gastrooesophageal reflux disease [Unknown]
  - Anaemia [Unknown]
  - Upper limb fracture [Unknown]
  - Femur fracture [Unknown]
  - Arthroscopy [Unknown]
  - Inappropriate schedule of drug administration [Unknown]
  - Rotator cuff syndrome [Unknown]
  - Hypertension [Unknown]
  - Hypercholesterolaemia [Unknown]
  - Pain [Unknown]
  - Device failure [Unknown]
  - Shoulder arthroplasty [Unknown]
  - Spinal operation [Unknown]
  - Femur fracture [Unknown]
  - Wrist fracture [Unknown]
  - Fall [Unknown]
  - Gait disturbance [Unknown]
  - Arthralgia [Unknown]
  - Retinopexy [Unknown]
  - Cholecystectomy [Unknown]
  - Low turnover osteopathy [Unknown]
  - Femur fracture [Unknown]

NARRATIVE: CASE EVENT DATE: 200305
